FAERS Safety Report 5026624-9 (Version None)
Quarter: 2006Q2

REPORT INFORMATION
  Report Type: 
  Country: None (occurrence: None)
  Receive Date: 20060615
  Receipt Date: 20060612
  Transmission Date: 20061013
  Serious: Yes (Death)
  Sender: FDA-Public Use
  Company Number: 2006AC01097

PATIENT
  Age: 46 Year
  Sex: Male

DRUGS (6)
  1. SEROQUEL [Suspect]
     Route: 048
  2. METHADONE HCL [Suspect]
  3. NORTRIPTYLINE HCL [Suspect]
  4. FLUOXETINE [Suspect]
  5. DIAZEPAM [Suspect]
  6. NORDIAZ [Suspect]

REACTIONS (2)
  - ACCIDENTAL DEATH [None]
  - DRUG TOXICITY [None]
